FAERS Safety Report 24622706 (Version 2)
Quarter: 2025Q1

REPORT INFORMATION
  Report Type: Report from Study
  Country: US (occurrence: US)
  Receive Date: 20241115
  Receipt Date: 20250106
  Transmission Date: 20250409
  Serious: No
  Sender: BIOGEN
  Company Number: US-BIOGEN-2024BI01290018

PATIENT
  Sex: Female

DRUGS (4)
  1. ZURZUVAE [Suspect]
     Active Substance: ZURANOLONE
     Indication: Perinatal depression
     Dosage: TAKE 50MG ONCE DAILY
     Route: 050
     Dates: start: 20241101
  2. AMOXICILLIN [Suspect]
     Active Substance: AMOXICILLIN
     Indication: Sinusitis
     Route: 050
  3. PREDNISONE [Suspect]
     Active Substance: PREDNISONE
     Indication: Sinusitis
     Route: 050
  4. ZOLOFT [Concomitant]
     Active Substance: SERTRALINE HYDROCHLORIDE
     Indication: Product used for unknown indication
     Route: 050

REACTIONS (3)
  - Sinusitis [Unknown]
  - Tic [Unknown]
  - Somnolence [Unknown]
